FAERS Safety Report 5906284-2 (Version None)
Quarter: 2008Q4

REPORT INFORMATION
  Report Type: 
  Country: None (occurrence: None)
  Receive Date: 20081002
  Receipt Date: 20080922
  Transmission Date: 20090506
  Serious: Yes (Other)
  Sender: FDA-Public Use
  Company Number: US-BAXTER-2008BH010102

PATIENT
  Age: 83 Year

DRUGS (4)
  1. FEIBA VH IMMUNO [Suspect]
     Indication: POST PROCEDURAL HAEMORRHAGE
     Route: 042
  2. FEIBA VH IMMUNO [Suspect]
     Indication: OFF LABEL USE
     Route: 042
  3. NOREPINEPHRINE [Suspect]
     Indication: HYPERTENSION
     Dosage: DOSE UNIT:UNKNOWN
     Route: 065
  4. VASOPRESSIN [Suspect]
     Indication: HYPERTENSION
     Dosage: DOSE UNIT:UNKNOWN
     Route: 065

REACTIONS (3)
  - HAEMOTHORAX [None]
  - PERIPHERAL ISCHAEMIA [None]
  - RENAL FAILURE ACUTE [None]
